FAERS Safety Report 24307759 (Version 1)
Quarter: 2024Q3

REPORT INFORMATION
  Report Type: Report from Study
  Country: CA (occurrence: CA)
  Receive Date: 20240911
  Receipt Date: 20240911
  Transmission Date: 20241016
  Serious: Yes (Hospitalization)
  Sender: HLS THERAPEUTICS
  Company Number: CA-HLS-202402198

PATIENT
  Age: 50 Year
  Sex: Male

DRUGS (6)
  1. CLOZARIL [Suspect]
     Active Substance: CLOZAPINE
     Indication: Schizophrenia
     Dosage: TAKE 1.75 TABLETS (175MG TOTAL) BY MOUTH 1 TIME EACH DAY
     Route: 048
  2. CLOZARIL [Suspect]
     Active Substance: CLOZAPINE
     Indication: Schizophrenia
     Dosage: 75MG DAILY
     Route: 048
     Dates: start: 20240728
  3. FLONASE [Concomitant]
     Active Substance: FLUTICASONE PROPIONATE
     Indication: Product used for unknown indication
     Dosage: ADMINISTER 2 SPRAYS IN TO EACH NOSTRIL 1 TIME EACH DAY. SHAKE GENTLY, BEFORE FIRST USE, PRIME PUMP.
     Route: 045
  4. ISOPTO TEARS [Concomitant]
     Active Substance: HYPROMELLOSE 2910 (4000 MPA.S)
     Indication: Dry eye
     Dosage: ADMINISTER 1 DROP IN TO BOTH EYES IF NEEDED?0.5% OPHTHALMIC SOLUTION
     Route: 047
  5. ZUCLOPENTHIXOL [Concomitant]
     Active Substance: ZUCLOPENTHIXOL
     Indication: Product used for unknown indication
     Dosage: 1.75ML (350MG 3.5ML TOTAL) IN TO THE SHOULDER, THIGH, OR BUTTOCKS EVERY 14 DAYS
     Route: 030
     Dates: start: 20240309
  6. VITAMIN B12 [Concomitant]
     Active Substance: CYANOCOBALAMIN
     Indication: Product used for unknown indication
     Dosage: 1 TABLET BY MOUTH 1 TIME EACH DAY
     Route: 048

REACTIONS (3)
  - Anxiety [Unknown]
  - Delusion [Unknown]
  - Treatment noncompliance [Recovered/Resolved]
